FAERS Safety Report 9377112 (Version 2)
Quarter: 2013Q3

REPORT INFORMATION
  Report Type: Spontaneous
  Country: US (occurrence: US)
  Receive Date: 20130701
  Receipt Date: 20130821
  Transmission Date: 20140515
  Serious: Yes (Death, Hospitalization, Other)
  Sender: FDA-Public Use
  Company Number: US-PFIZER INC-2013192369

PATIENT
  Age: 85 Year
  Sex: Female
  Weight: 47.1 kg

DRUGS (15)
  1. REVATIO [Suspect]
     Indication: PULMONARY HYPERTENSION
     Dosage: 20 MG, 3X/DAY
     Route: 048
     Dates: start: 20090701
  2. FOSAMAX [Concomitant]
     Dosage: 70 MG, WEEKLY
     Route: 048
  3. CADUET [Concomitant]
     Dosage: 1 DF (10MG-10MG), 1X/DAY
     Route: 048
  4. ASPIRIN [Concomitant]
     Dosage: 81 MG, 1X/DAY
     Route: 048
  5. CALCIUM 600 D [Concomitant]
     Dosage: 1 DF, 1X/DAY
     Route: 048
  6. DILTIAZEM HYDROCHLORIDE [Concomitant]
     Dosage: 240 MG, 1X/DAY
     Route: 048
  7. LASIX [Concomitant]
     Dosage: 20 MG, 1X/DAY
     Route: 048
  8. NEURONTIN [Concomitant]
     Dosage: 300 MG, 3X/DAY
     Route: 048
  9. LOPRESSOR [Concomitant]
     Dosage: 50 MG, 2X/DAY
     Route: 048
  10. LOPRESSOR [Concomitant]
     Dosage: 25 MG, 2X/DAY (0.5 TABS)
     Route: 047
  11. OMEPRAZOLE [Concomitant]
     Dosage: 20 MG, 1X/DAY (TAKE ON EMPTY STOMACH BEFORE MEALS)
     Route: 048
  12. POTASSIUM CHLORIDE [Concomitant]
     Dosage: 10 MEQ, 1X/DAY (10MEQ/100ML INTRAVENOUS SOLUTION)
     Route: 042
  13. OCEAN [Concomitant]
     Indication: NASAL CONGESTION
     Dosage: 0.65% NASAL SOLUTION, AS NEEDED (2 SPARY(S) AS DIRECTED UNSCHEDULED)
     Route: 045
  14. DILTIAZEM [Concomitant]
     Dosage: 120 MG, 3X/DAY
     Route: 048
  15. CRESTOR [Concomitant]
     Dosage: 10 MG, 1X/DAY (1 TABL BY MOUTH AT BETIME)
     Route: 048

REACTIONS (9)
  - Coma [Fatal]
  - Cardiogenic shock [Fatal]
  - Acute pulmonary oedema [Fatal]
  - Acute respiratory failure [Fatal]
  - Acute myocardial infarction [Unknown]
  - Systemic sclerosis [Fatal]
  - Left ventricular failure [Fatal]
  - Cardiac failure congestive [Fatal]
  - Ventricular failure [Fatal]
